FAERS Safety Report 12708221 (Version 2)
Quarter: 2017Q1

REPORT INFORMATION
  Report Type: Spontaneous
  Country: US (occurrence: US)
  Receive Date: 20160901
  Receipt Date: 20170201
  Transmission Date: 20170428
  Serious: Yes (Other)
  Sender: FDA-Public Use
  Company Number: US-BAYER-2016-169956

PATIENT
  Age: 29 Year
  Sex: Female

DRUGS (1)
  1. MIRENA [Suspect]
     Active Substance: LEVONORGESTREL
     Dosage: 20 MCG/24HR, CONT
     Route: 015
     Dates: start: 20100120, end: 20100805

REACTIONS (7)
  - Neck pain [None]
  - Vision blurred [None]
  - Amnesia [None]
  - Headache [None]
  - Nausea [None]
  - Musculoskeletal pain [None]
  - Benign intracranial hypertension [None]

NARRATIVE: CASE EVENT DATE: 2010
